FAERS Safety Report 20170974 (Version 1)
Quarter: 2021Q4

REPORT INFORMATION
  Report Type: Spontaneous
  Country: US (occurrence: None)
  Receive Date: 20211210
  Receipt Date: 20211210
  Transmission Date: 20220303
  Serious: Yes (Hospitalization)
  Sender: FDA-Public Use
  Company Number: None

PATIENT
  Age: 48 Year
  Sex: Male
  Weight: 87.9 kg

DRUGS (2)
  1. REGEN-COV [Suspect]
     Active Substance: CASIRIVIMAB\IMDEVIMAB
  2. REGEN-COV [Concomitant]
     Active Substance: CASIRIVIMAB\IMDEVIMAB
     Dates: start: 20211203, end: 20211203

REACTIONS (3)
  - Chest pain [None]
  - Oxygen saturation decreased [None]
  - COVID-19 pneumonia [None]

NARRATIVE: CASE EVENT DATE: 20211204
